FAERS Safety Report 7610397-7 (Version None)
Quarter: 2011Q3

REPORT INFORMATION
  Report Type: 
  Country: None (occurrence: None)
  Receive Date: 20110715
  Receipt Date: 20110712
  Transmission Date: 20111222
  Serious: No
  Sender: FDA-Public Use
  Company Number: US-PFIZER INC-2011157555

PATIENT
  Sex: Female

DRUGS (5)
  1. NEURONTIN [Suspect]
     Indication: PAIN
     Dosage: 1 ML, 3X/DAY, EVERY 8 HOURS
     Route: 048
     Dates: start: 20110217, end: 20110711
  2. LIDODERM [Concomitant]
     Indication: PAIN
     Dosage: UNK
  3. CLONAZEPAM [Concomitant]
     Indication: ANXIETY
     Dosage: UNK
  4. NEURONTIN [Suspect]
     Dosage: 1 ML, 3X/DAY, EVERY 8 HOURS
     Dates: start: 20110712
  5. ZOLOFT [Concomitant]
     Indication: DEPRESSION
     Dosage: UNK

REACTIONS (2)
  - INCORRECT PRODUCT STORAGE [None]
  - DRUG EFFECT DECREASED [None]
